FAERS Safety Report 7168048-4 (Version None)
Quarter: 2010Q4

REPORT INFORMATION
  Report Type: 
  Country: None (occurrence: None)
  Receive Date: 20101216
  Receipt Date: 20101210
  Transmission Date: 20110411
  Serious: No
  Sender: FDA-Public Use
  Company Number: US-PFIZER INC-2010170628

PATIENT
  Sex: Female

DRUGS (1)
  1. LOPID [Suspect]
     Dosage: UNK
     Dates: end: 20100104

REACTIONS (2)
  - ALOPECIA [None]
  - HAIR DISORDER [None]
